FAERS Safety Report 4312064-4 (Version None)
Quarter: 2004Q1

REPORT INFORMATION
  Report Type: 
  Country: None (occurrence: None)
  Receive Date: 20040303
  Receipt Date: 20040218
  Transmission Date: 20041129
  Serious: Yes (Death, Hospitalization)
  Sender: FDA-Public Use
  Company Number: 02100-JPN-04-0020

PATIENT
  Age: 81 Year
  Sex: Male

DRUGS (13)
  1. CILOSTAZOL [Suspect]
     Dosage: 200 MG, ORAL
     Route: 048
     Dates: start: 20010601, end: 20031231
  2. AMIODARONE HYDROCHLORIDE [Suspect]
     Dosage: 200 MG ORAL
     Route: 048
     Dates: start: 20030301, end: 20031231
  3. THYROID TAB [Concomitant]
  4. RANITIDINE HYDROCHLORIDE [Concomitant]
  5. ACETYLSALICYLIC ACID [Concomitant]
  6. PRECIPITATED CALCIUM CARBONATE [Concomitant]
  7. FUROSEMIDE [Concomitant]
  8. FAMOTIDINE [Concomitant]
  9. MEQUITAZINE [Concomitant]
  10. HEPARIN [Concomitant]
  11. CLARITHROMYCIN [Concomitant]
  12. CEFTAZIDIME [Concomitant]
  13. ERYTHROMYCIN [Concomitant]

REACTIONS (16)
  - ATRIAL FIBRILLATION [None]
  - BLOOD PRESSURE DECREASED [None]
  - C-REACTIVE PROTEIN INCREASED [None]
  - ENTEROCOLITIS VIRAL [None]
  - HAEMOPTYSIS [None]
  - INTERSTITIAL LUNG DISEASE [None]
  - OPPORTUNISTIC INFECTION [None]
  - PLATELET COUNT DECREASED [None]
  - PLEURAL EFFUSION [None]
  - PNEUMONIA BACTERIAL [None]
  - PNEUMONIA MYCOPLASMAL [None]
  - PNEUMONIA PRIMARY ATYPICAL [None]
  - POST PROCEDURAL COMPLICATION [None]
  - PULMONARY TUBERCULOSIS [None]
  - RESPIRATORY FAILURE [None]
  - VENTRICULAR EXTRASYSTOLES [None]
